FAERS Safety Report 11668840 (Version 1)
Quarter: 2015Q4

REPORT INFORMATION
  Report Type: Spontaneous
  Country: GB (occurrence: GB)
  Receive Date: 20151027
  Receipt Date: 20151027
  Transmission Date: 20160304
  Serious: Yes (Hospitalization)
  Sender: FDA-Public Use
  Company Number: GB-009507513-1510GBR011084

PATIENT

DRUGS (4)
  1. NOXAFIL [Suspect]
     Active Substance: POSACONAZOLE
     Dosage: 300 MG, ONCE A DAY
     Route: 048
     Dates: start: 20150808, end: 201508
  2. NOXAFIL [Suspect]
     Active Substance: POSACONAZOLE
     Dosage: UNK
  3. NOXAFIL [Suspect]
     Active Substance: POSACONAZOLE
     Dosage: 300 MG, QD
     Route: 048
     Dates: start: 20150814, end: 20150903
  4. NOXAFIL [Suspect]
     Active Substance: POSACONAZOLE
     Dosage: UNK UNK, TID
     Route: 048
     Dates: start: 201508

REACTIONS (5)
  - Product dosage form confusion [Unknown]
  - Mucormycosis [Unknown]
  - Product dosage form confusion [Unknown]
  - Underdose [Unknown]
  - Product label issue [Unknown]

NARRATIVE: CASE EVENT DATE: 2015
